FAERS Safety Report 20011666 (Version 1)
Quarter: 2021Q4

REPORT INFORMATION
  Report Type: Spontaneous
  Country: US (occurrence: US)
  Receive Date: 20211029
  Receipt Date: 20211029
  Transmission Date: 20220303
  Serious: Yes (Life-Threatening, Hospitalization, Other)
  Sender: FDA-Public Use
  Company Number: US-MLMSERVICE-20211013-3163693-1

PATIENT
  Age: 41 Year
  Sex: Male

DRUGS (1)
  1. AMLODIPINE [Suspect]
     Active Substance: AMLODIPINE BESYLATE
     Dosage: INGESTED
     Route: 048

REACTIONS (4)
  - Acute kidney injury [Recovering/Resolving]
  - Intentional overdose [Unknown]
  - Hypervolaemia [Recovering/Resolving]
  - Cardiogenic shock [Recovering/Resolving]
